FAERS Safety Report 5705148-7 (Version None)
Quarter: 2008Q2

REPORT INFORMATION
  Report Type: 
  Country: None (occurrence: None)
  Receive Date: 20080414
  Receipt Date: 20080409
  Transmission Date: 20081010
  Serious: Yes (Hospitalization)
  Sender: FDA-Public Use
  Company Number: IT-GENENTECH-259101

PATIENT
  Age: 61 Year
  Sex: Male

DRUGS (1)
  1. ACTIVASE [Suspect]
     Indication: MYOCARDIAL INFARCTION

REACTIONS (3)
  - AORTIC THROMBOSIS [None]
  - INTRACARDIAC THROMBUS [None]
  - RENAL IMPAIRMENT [None]
